FAERS Safety Report 8124241-5 (Version None)
Quarter: 2012Q1

REPORT INFORMATION
  Report Type: 
  Country: None (occurrence: None)
  Receive Date: 20120209
  Receipt Date: 20120131
  Transmission Date: 20120608
  Serious: Yes (Hospitalization)
  Sender: FDA-Public Use
  Company Number: US-BRISTOL-MYERS SQUIBB COMPANY-15844442

PATIENT
  Age: 56 Year
  Sex: Female
  Weight: 69 kg

DRUGS (5)
  1. PACLITAXEL [Suspect]
     Indication: BREAST CANCER
     Dosage: INTERRUPTED ON 19MAY11:DOSE-119MG CYCLE:WEEK 7. MOST RECENT INFUSION 19MAY11.
     Route: 042
     Dates: start: 20110407
  2. SYNTHROID [Concomitant]
     Indication: HYPERTHYROIDISM
     Dates: start: 20000101
  3. CYCLOPHOSPHAMIDE [Suspect]
     Indication: BREAST CANCER
     Dosage: MOST RECENT DOSE:17MAR11 INTERRUPTED ON 17MAR11:DOSE-1020MG
     Route: 042
     Dates: start: 20110113
  4. ADRIAMYCIN PFS [Suspect]
     Indication: BREAST CANCER
     Dosage: DOSE-102MG.INTERRUPTED ON 17MAR11 MOST RECENT DOSE:17MAR11
     Route: 042
     Dates: start: 20110113
  5. AVAPRO [Concomitant]
     Indication: HYPERTENSION
     Dates: start: 20050101

REACTIONS (5)
  - HYPOPHOSPHATAEMIA [None]
  - DYSPNOEA [None]
  - HAEMOGLOBIN DECREASED [None]
  - PNEUMONIA [None]
  - RESPIRATORY FAILURE [None]
